FAERS Safety Report 8511876-0 (Version None)
Quarter: 2012Q3

REPORT INFORMATION
  Report Type: 
  Country: None (occurrence: None)
  Receive Date: 20120711
  Receipt Date: 20120711
  Transmission Date: 20120928
  Serious: No
  Sender: FDA-Public Use
  Company Number: None

PATIENT
  Age: 56 Year
  Sex: Female
  Weight: 56.6996 kg

DRUGS (1)
  1. ALLI (ORLISTAT) [Suspect]
     Indication: WEIGHT CONTROL
     Dosage: 1 - 2 CAPSULES PER MEAL 3X DAY PO
     Route: 048
     Dates: start: 20120627, end: 20120707

REACTIONS (8)
  - ABNORMAL FAECES [None]
  - MALAISE [None]
  - DRUG INEFFECTIVE [None]
  - MUSCLE SPASMS [None]
  - CONSTIPATION [None]
  - PRODUCT QUALITY ISSUE [None]
  - BACK PAIN [None]
  - ABDOMINAL DISTENSION [None]
